FAERS Safety Report 14744747 (Version 1)
Quarter: 2018Q2

REPORT INFORMATION
  Report Type: Report from Study
  Country: HU (occurrence: HU)
  Receive Date: 20180411
  Receipt Date: 20180411
  Transmission Date: 20180711
  Serious: Yes (Other)
  Sender: FDA-Public Use
  Company Number: HU-ALVOGEN-2018-ALVOGEN-095771

PATIENT
  Age: 54 Year
  Sex: Female
  Weight: 78 kg

DRUGS (3)
  1. AFINITOR [Suspect]
     Active Substance: EVEROLIMUS
     Indication: BREAST CANCER METASTATIC
     Route: 065
     Dates: start: 20160524
  2. ZOLEDRONIC ACID [Concomitant]
     Active Substance: ZOLEDRONIC ACID
     Indication: PRODUCT USED FOR UNKNOWN INDICATION
     Route: 065
  3. EXEMESTANE. [Suspect]
     Active Substance: EXEMESTANE
     Indication: BREAST CANCER METASTATIC
     Route: 065
     Dates: start: 20160524

REACTIONS (28)
  - Nasal injury [Unknown]
  - Back pain [Unknown]
  - Weight decreased [Unknown]
  - Abdominal pain upper [Recovering/Resolving]
  - Arthritis [Unknown]
  - Chest discomfort [Unknown]
  - Oral disorder [Unknown]
  - Erythema [Recovering/Resolving]
  - Blood thyroid stimulating hormone increased [Unknown]
  - Stomatitis [Recovered/Resolved]
  - Pleural effusion [Unknown]
  - Hypothyroidism [Unknown]
  - Dyspnoea [Unknown]
  - Epistaxis [Unknown]
  - Skin lesion [Recovering/Resolving]
  - Gastrooesophageal reflux disease [Unknown]
  - Aphthous ulcer [Recovering/Resolving]
  - Dry skin [Unknown]
  - Chest pain [Unknown]
  - Nausea [Unknown]
  - Bowel movement irregularity [Unknown]
  - Lymphadenopathy [Unknown]
  - Pruritus [Recovering/Resolving]
  - Uterine leiomyoma [Unknown]
  - Diarrhoea [Recovering/Resolving]
  - Onychoclasis [Unknown]
  - Arthralgia [Unknown]
  - Hypoaesthesia [Unknown]

NARRATIVE: CASE EVENT DATE: 20160725
